FAERS Safety Report 14110138 (Version 1)
Quarter: 2017Q4

REPORT INFORMATION
  Report Type: Spontaneous
  Country: DE (occurrence: DE)
  Receive Date: 20171020
  Receipt Date: 20171020
  Transmission Date: 20180321
  Serious: Yes (Hospitalization)
  Sender: FDA-Public Use
  Company Number: DE-ALKABELLO-2017AA003443

PATIENT
  Age: 56 Year
  Sex: Male

DRUGS (1)
  1. ACARIZAX 12 SQ-HDM LYOPHILISAT ZUM EINNEHMEN [Suspect]
     Active Substance: DERMATOPHAGOIDES FARINAE\DERMATOPHAGOIDES PTERONYSSINUS
     Dosage: DOSE UNIT:12 SQ-HOUSE DUST MITE
     Dates: start: 20170307, end: 201703

REACTIONS (1)
  - Oesophageal carcinoma [Recovered/Resolved]

NARRATIVE: CASE EVENT DATE: 201703
